FAERS Safety Report 9735604 (Version 2)
Quarter: 2013Q4

REPORT INFORMATION
  Report Type: Spontaneous
  Country: FR (occurrence: FR)
  Receive Date: 20131206
  Receipt Date: 20131226
  Transmission Date: 20140711
  Serious: Yes (Other)
  Sender: FDA-Public Use
  Company Number: PHHY2013FR138389

PATIENT
  Sex: Female

DRUGS (3)
  1. TAREG [Suspect]
     Indication: BLOOD PRESSURE ABNORMAL
     Dosage: UNK UKN, UNK
  2. AUGMENTIN [Concomitant]
     Dosage: UNK UKN, UNK
  3. DOLIPRANE [Concomitant]
     Dosage: UNK UKN, UNK

REACTIONS (4)
  - Visual impairment [Unknown]
  - Glaucoma [Unknown]
  - Visual acuity reduced [Unknown]
  - Anxiety [Unknown]
